FAERS Safety Report 10009749 (Version 2)
Quarter: 2014Q1

REPORT INFORMATION
  Report Type: Spontaneous
  Country: US (occurrence: US)
  Receive Date: 20140312
  Receipt Date: 20140312
  Transmission Date: 20141002
  Serious: No
  Sender: FDA-Public Use
  Company Number: US-INCYTE CORPORATION-2012IN002569

PATIENT
  Age: 81 Year
  Sex: Male
  Weight: 80.73 kg

DRUGS (4)
  1. JAKAFI [Suspect]
     Indication: MYELOFIBROSIS
     Dosage: 20 MG, BID
     Route: 048
     Dates: start: 20121008, end: 20121128
  2. JAKAFI [Suspect]
     Dosage: NOT SPECIFIED
     Route: 048
  3. METOPROLOL [Concomitant]
     Dosage: 25 MG, QOD
  4. XANAX [Concomitant]
     Dosage: 0.5 MG, BID

REACTIONS (3)
  - Aspartate aminotransferase increased [Recovered/Resolved]
  - Alanine aminotransferase increased [Recovered/Resolved]
  - Pyrexia [Recovering/Resolving]
